FAERS Safety Report 5762777-2 (Version None)
Quarter: 2008Q2

REPORT INFORMATION
  Report Type: 
  Country: None (occurrence: None)
  Receive Date: 20080604
  Receipt Date: 20080527
  Transmission Date: 20081010
  Serious: Yes (Hospitalization)
  Sender: FDA-Public Use
  Company Number: 150-C5013-08051473

PATIENT
  Age: 82 Year
  Sex: Male
  Weight: 67.3 kg

DRUGS (3)
  1. CC-5013 \PLACEBO(LENALIDOMIDE) (CAPSULES) [Suspect]
     Indication: MULTIPLE MYELOMA
     Dosage: 10 MG, 1 IN 1 D, ORAL
     Route: 048
     Dates: start: 20080512, end: 20080526
  2. MELPHALAN (MELPHALAN) [Suspect]
     Indication: MULTIPLE MYELOMA
     Dosage: 14 MG, ORAL
     Route: 048
     Dates: start: 20080512, end: 20080515
  3. PREDNISONE TAB [Suspect]
     Indication: MULTIPLE MYELOMA
     Dosage: 151 MG, ORAL
     Route: 048
     Dates: start: 20080512, end: 20080515

REACTIONS (5)
  - BLISTER [None]
  - ERYTHEMA [None]
  - INFECTION [None]
  - NAUSEA [None]
  - SINUS TACHYCARDIA [None]
